FAERS Safety Report 9536123 (Version 1)
Quarter: 2013Q3

REPORT INFORMATION
  Report Type: Spontaneous
  Country: US (occurrence: None)
  Receive Date: 20130917
  Receipt Date: 20130917
  Transmission Date: 20140515
  Serious: No
  Sender: FDA-Public Use
  Company Number: None

PATIENT
  Age: 58 Year
  Sex: Female
  Weight: 81.65 kg

DRUGS (5)
  1. DORYX [Suspect]
     Indication: ARTHROPOD BITE
     Route: 048
     Dates: start: 20130820, end: 20130821
  2. VITAMIN B COMPLEX [Concomitant]
  3. VITAMIN E [Concomitant]
  4. VITAMIN D [Concomitant]
  5. VITAMIN C [Concomitant]

REACTIONS (1)
  - Dizziness [None]
